FAERS Safety Report 8294581-8 (Version None)
Quarter: 2012Q2

REPORT INFORMATION
  Report Type: 
  Country: None (occurrence: None)
  Receive Date: 20120418
  Receipt Date: 20120410
  Transmission Date: 20120825
  Serious: Yes (Hospitalization)
  Sender: FDA-Public Use
  Company Number: US-ACTELION-A-NJ2011-51670

PATIENT

DRUGS (5)
  1. TRACLEER [Suspect]
     Indication: PULMONARY ARTERIAL HYPERTENSION
     Dosage: UNK
     Route: 048
     Dates: start: 20100603
  2. VENTAVIS [Concomitant]
     Indication: PULMONARY ARTERIAL HYPERTENSION
     Dosage: UNK
     Route: 055
     Dates: start: 20110609
  3. ADCIRCA [Concomitant]
  4. REVATIO [Concomitant]
  5. COUMADIN [Concomitant]

REACTIONS (5)
  - RENAL DISORDER [None]
  - RENAL FAILURE [None]
  - ABDOMINAL DISTENSION [None]
  - DYSPNOEA [None]
  - OEDEMA PERIPHERAL [None]
